FAERS Safety Report 8392696-7 (Version None)
Quarter: 2012Q2

REPORT INFORMATION
  Report Type: 
  Country: None (occurrence: None)
  Receive Date: 20120529
  Receipt Date: 20120518
  Transmission Date: 20120825
  Serious: Yes (Hospitalization)
  Sender: FDA-Public Use
  Company Number: BR-ASTRAZENECA-2012SE32781

PATIENT
  Age: 72 Year
  Sex: Male
  Weight: 63.5 kg

DRUGS (5)
  1. INSULIN [Suspect]
     Indication: DIABETES MELLITUS
     Route: 058
     Dates: start: 19970101, end: 20120401
  2. CRESTOR [Suspect]
     Indication: BLOOD CHOLESTEROL INCREASED
     Route: 048
     Dates: end: 20120518
  3. ATENOLOL [Suspect]
     Indication: HYPERTENSION
     Route: 048
     Dates: end: 20120501
  4. ATENOLOL [Suspect]
     Route: 048
  5. CRESTOR [Suspect]
     Route: 048

REACTIONS (1)
  - BLOOD GLUCOSE INCREASED [None]
